FAERS Safety Report 5256672-5 (Version None)
Quarter: 2007Q1

REPORT INFORMATION
  Report Type: 
  Country: None (occurrence: None)
  Receive Date: 20070306
  Receipt Date: 20070228
  Transmission Date: 20070707
  Serious: Yes (Death, Hospitalization)
  Sender: FDA-Public Use
  Company Number: PHNU2006DE02648

PATIENT
  Age: 34 Year
  Sex: Male
  Weight: 60 kg

DRUGS (2)
  1. CLOZAPINE [Suspect]
     Indication: SCHIZOPHRENIA
     Dosage: 50 MG/DAY
     Route: 048
     Dates: start: 20060306, end: 20060307
  2. CIATYL-Z [Suspect]
     Dosage: 40 MG/DAY
     Route: 048
     Dates: start: 20060306, end: 20060307

REACTIONS (7)
  - CARDIAC ARREST [None]
  - CHILLS [None]
  - CONVULSION [None]
  - HEPATIC ENZYME ABNORMAL [None]
  - HYPOXIC ENCEPHALOPATHY [None]
  - NEUROLEPTIC MALIGNANT SYNDROME [None]
  - PYREXIA [None]
